FAERS Safety Report 17661412 (Version 1)
Quarter: 2020Q2

REPORT INFORMATION
  Report Type: Report from Study
  Country: CA (occurrence: CA)
  Receive Date: 20200413
  Receipt Date: 20200413
  Transmission Date: 20200713
  Serious: Yes (Hospitalization, Other)
  Sender: FDA-Public Use
  Company Number: CA-GLAXOSMITHKLINE-CA2020AMR062307

PATIENT
  Sex: Female

DRUGS (1)
  1. MEPOLIZUMAB [Suspect]
     Active Substance: MEPOLIZUMAB
     Indication: EOSINOPHILIC GRANULOMATOSIS WITH POLYANGIITIS
     Dosage: 300 MG, ZMONTHLY
     Dates: start: 20190719

REACTIONS (5)
  - Cough [Unknown]
  - Kidney infection [Unknown]
  - Hospitalisation [Unknown]
  - Dysphonia [Unknown]
  - Nephrolithiasis [Unknown]
